FAERS Safety Report 14737834 (Version 2)
Quarter: 2018Q2

REPORT INFORMATION
  Report Type: Spontaneous
  Country: US (occurrence: US)
  Receive Date: 20180409
  Receipt Date: 20180413
  Transmission Date: 20180711
  Serious: No
  Sender: FDA-Public Use
  Company Number: US-TEVA-2018-US-878339

PATIENT
  Sex: Female

DRUGS (1)
  1. FENTANYL. [Suspect]
     Active Substance: FENTANYL
     Indication: SPINAL COLUMN STENOSIS
     Dosage: A YEAR OR SO
     Route: 065

REACTIONS (3)
  - Drug screen negative [Unknown]
  - Skin irritation [Unknown]
  - Blister [Unknown]

NARRATIVE: CASE EVENT DATE: 20180227
